FAERS Safety Report 5624128-3 (Version None)
Quarter: 2008Q1

REPORT INFORMATION
  Report Type: 
  Country: None (occurrence: None)
  Receive Date: 20080213
  Receipt Date: 20080201
  Transmission Date: 20080703
  Serious: Yes (Hospitalization)
  Sender: FDA-Public Use
  Company Number: FR-BAYER-200718637GPV

PATIENT
  Age: 41 Year
  Sex: Female
  Weight: 62 kg

DRUGS (3)
  1. MIRENA [Suspect]
     Indication: DRUG USE FOR UNKNOWN INDICATION
     Dosage: TOTAL DAILY DOSE: 20 ?G/D
     Route: 015
     Dates: start: 20060101, end: 20071115
  2. TERCIAN [Concomitant]
     Indication: DRUG USE FOR UNKNOWN INDICATION
     Route: 048
     Dates: start: 20060101, end: 20080124
  3. PRAZEPAM [Concomitant]
     Indication: ANXIOLYTIC THERAPY
     Route: 048
     Dates: start: 20060101, end: 20080124

REACTIONS (2)
  - DEPRESSION [None]
  - PSYCHOTIC DISORDER [None]
